FAERS Safety Report 5794385-1 (Version None)
Quarter: 2008Q2

REPORT INFORMATION
  Report Type: 
  Country: None (occurrence: None)
  Receive Date: 20080625
  Receipt Date: 20080611
  Transmission Date: 20081010
  Serious: Yes (Death, Hospitalization)
  Sender: FDA-Public Use
  Company Number: 2008AL006125

PATIENT
  Age: 83 Year
  Sex: Female

DRUGS (1)
  1. DIGOXIN                 (AMIDE) [Suspect]
     Indication: CARDIAC DISORDER

REACTIONS (5)
  - ANOREXIA [None]
  - ASTHENIA [None]
  - DIARRHOEA [None]
  - FALL [None]
  - OEDEMA PERIPHERAL [None]
